FAERS Safety Report 18685911 (Version 1)
Quarter: 2020Q4

REPORT INFORMATION
  Report Type: Spontaneous
  Country: US (occurrence: US)
  Receive Date: 20201230
  Receipt Date: 20201230
  Transmission Date: 20210114
  Serious: No
  Sender: FDA-Public Use
  Company Number: US-BAYER-2020-286943

PATIENT
  Sex: Female

DRUGS (1)
  1. CLARITIN LIQUI-GELS [Suspect]
     Active Substance: LORATADINE
     Indication: URTICARIA
     Dosage: 1 DF
     Route: 048
     Dates: start: 20201226, end: 20201229

REACTIONS (1)
  - Drug effective for unapproved indication [Unknown]
